FAERS Safety Report 7100339-5 (Version None)
Quarter: 2010Q4

REPORT INFORMATION
  Report Type: 
  Country: None (occurrence: None)
  Receive Date: 20101112
  Receipt Date: 20101020
  Transmission Date: 20110411
  Serious: Yes (Hospitalization)
  Sender: FDA-Public Use
  Company Number: DE-AMGEN-DEUCT2010001012

PATIENT

DRUGS (10)
  1. ETANERCEPT [Suspect]
     Indication: RHEUMATOID ARTHRITIS
  2. AMLODIPINE [Concomitant]
  3. RAMIPRIL [Concomitant]
  4. EZETIMIBE/SIMVASTATIN [Concomitant]
  5. ACETYLSALICYLIC ACID SRT [Concomitant]
  6. METOHEXAL [Concomitant]
  7. METFORMIN [Concomitant]
  8. OPIPRAMOL [Concomitant]
  9. ALENDRONATE SODIUM [Concomitant]
  10. OMEPRAZOLE [Concomitant]

REACTIONS (1)
  - ENDOMETRIAL HYPERPLASIA [None]
